FAERS Safety Report 22104049 (Version 1)
Quarter: 2023Q1

REPORT INFORMATION
  Report Type: Spontaneous
  Country: US (occurrence: US)
  Receive Date: 20230316
  Receipt Date: 20230316
  Transmission Date: 20230417
  Serious: No
  Sender: FDA-Public Use
  Company Number: US-BAYER-2023A034842

PATIENT

DRUGS (1)
  1. MIRALAX [Suspect]
     Active Substance: POLYETHYLENE GLYCOL 3350
     Indication: Colonoscopy
     Dosage: 238 GRAMD AND 119 GRAMS DISSOLVED IN 64 OZ OF GATORADE
     Route: 048

REACTIONS (2)
  - Off label use [None]
  - Product prescribing issue [None]
